FAERS Safety Report 5344002-X (Version None)
Quarter: 2007Q2

REPORT INFORMATION
  Report Type: 
  Country: None (occurrence: None)
  Receive Date: 20070604
  Receipt Date: 20070524
  Transmission Date: 20071010
  Serious: Yes (Hospitalization, Other)
  Sender: FDA-Public Use
  Company Number: JP-JNJFOC-20050802346

PATIENT
  Sex: Female
  Weight: 44 kg

DRUGS (21)
  1. REMICADE [Suspect]
     Route: 042
  2. REMICADE [Suspect]
     Route: 042
  3. REMICADE [Suspect]
     Route: 042
  4. REMICADE [Suspect]
     Indication: RHEUMATOID ARTHRITIS
     Route: 042
  5. PREDNISOLONE [Suspect]
     Indication: RHEUMATOID ARTHRITIS
     Route: 048
  6. METHOTREXATE SODIUM [Suspect]
     Route: 048
  7. METHOTREXATE SODIUM [Suspect]
     Route: 048
  8. METHOTREXATE SODIUM [Suspect]
     Route: 048
  9. METHOTREXATE SODIUM [Suspect]
     Indication: RHEUMATOID ARTHRITIS
     Route: 048
  10. ISCOTIN [Concomitant]
     Indication: ANTIBIOTIC PROPHYLAXIS
     Dosage: AT THE PATIENT'S DISCRETION.
     Route: 048
  11. ALTAT [Concomitant]
     Route: 048
  12. GASLON N [Concomitant]
     Route: 048
  13. FOLIAMIN [Concomitant]
     Route: 048
  14. CYANOCOBALAMIN [Concomitant]
     Route: 048
  15. DEPAS [Concomitant]
     Route: 048
  16. TIZANIN [Concomitant]
     Route: 048
  17. ROCALTROL [Concomitant]
     Dosage: DOSE = 0.5RG
     Route: 048
  18. MAGNESIUM OXIDE [Concomitant]
     Route: 048
  19. MOBIC [Concomitant]
     Indication: RHEUMATOID ARTHRITIS
     Route: 048
  20. METHOTREXATE SODIUM [Concomitant]
     Route: 048
  21. BENET [Concomitant]
     Route: 048

REACTIONS (3)
  - DIABETES MELLITUS [None]
  - PNEUMOCYSTIS JIROVECI PNEUMONIA [None]
  - PSEUDOMONAS INFECTION [None]
